FAERS Safety Report 6161158-X (Version None)
Quarter: 2009Q2

REPORT INFORMATION
  Report Type: 
  Country: None (occurrence: None)
  Receive Date: 20090417
  Receipt Date: 20090417
  Transmission Date: 20091009
  Serious: Yes (Hospitalization)
  Sender: FDA-Public Use
  Company Number: None

PATIENT
  Sex: Female
  Weight: 78.9259 kg

DRUGS (1)
  1. GABAPENTIN [Suspect]
     Indication: NEURALGIA
     Dosage: 300MG ONE-3X/DAY ORAL
     Route: 048
     Dates: start: 20090327, end: 20090330

REACTIONS (7)
  - FATIGUE [None]
  - GLOSSODYNIA [None]
  - LARYNGEAL MASS [None]
  - ORAL DISORDER [None]
  - RASH ERYTHEMATOUS [None]
  - SOMNOLENCE [None]
  - VISUAL IMPAIRMENT [None]
